FAERS Safety Report 5722058-X (Version None)
Quarter: 2008Q2

REPORT INFORMATION
  Report Type: 
  Country: None (occurrence: None)
  Receive Date: 20080429
  Receipt Date: 20080417
  Transmission Date: 20081010
  Serious: Yes (Other)
  Sender: FDA-Public Use
  Company Number: US-PFIZER INC-2008034826

PATIENT
  Sex: Female
  Weight: 95.3 kg

DRUGS (9)
  1. NEURONTIN [Suspect]
     Indication: NEUROPATHY PERIPHERAL
  2. LYRICA [Suspect]
     Indication: NEUROPATHY PERIPHERAL
  3. MORPHINE [Concomitant]
  4. PERCOCET [Concomitant]
  5. CYTOMEL [Concomitant]
  6. KLONOPIN [Concomitant]
  7. ALL OTHER THERAPEUTIC PRODUCTS [Concomitant]
  8. FERROUS SULFATE TAB [Concomitant]
  9. ZOMETA [Concomitant]

REACTIONS (5)
  - GAIT DISTURBANCE [None]
  - HIP FRACTURE [None]
  - HOMICIDAL IDEATION [None]
  - METASTASIS [None]
  - SUICIDAL IDEATION [None]
